FAERS Safety Report 4815445-5 (Version None)
Quarter: 2005Q4

REPORT INFORMATION
  Report Type: 
  Country: None (occurrence: None)
  Receive Date: 20051027
  Receipt Date: 20051027
  Transmission Date: 20060501
  Serious: Yes (Other)
  Sender: FDA-Public Use
  Company Number: None

PATIENT
  Age: 56 Year
  Sex: Female
  Weight: 70.7611 kg

DRUGS (1)
  1. ATIVAN [Suspect]
     Dosage: 2 MG -3-4 TIMES DAILY

REACTIONS (3)
  - ADVERSE DRUG REACTION [None]
  - DRUG EFFECT DECREASED [None]
  - PHARMACEUTICAL PRODUCT COMPLAINT [None]
